FAERS Safety Report 21116841 (Version 2)
Quarter: 2022Q3

REPORT INFORMATION
  Report Type: Spontaneous
  Country: IT (occurrence: IT)
  Receive Date: 20220722
  Receipt Date: 20220804
  Transmission Date: 20221026
  Serious: Yes (Other)
  Sender: FDA-Public Use
  Company Number: IT-TEVA-2022-IT-2055587

PATIENT
  Age: 20 Year
  Sex: Male

DRUGS (4)
  1. CYCLOSPORINE [Suspect]
     Active Substance: CYCLOSPORINE
     Indication: Immunosuppressant drug therapy
     Route: 065
  2. AZATHIOPRINE [Suspect]
     Active Substance: AZATHIOPRINE
     Indication: Immunosuppressant drug therapy
     Route: 065
  3. EQUINE THYMOCYTE IMMUNE GLOBULIN [Suspect]
     Active Substance: EQUINE THYMOCYTE IMMUNE GLOBULIN
     Indication: Immunosuppressant drug therapy
     Route: 065
  4. ELBASVIR\GRAZOPREVIR [Concomitant]
     Active Substance: ELBASVIR\GRAZOPREVIR
     Indication: Hepatitis C
     Route: 065

REACTIONS (5)
  - Bronchopulmonary aspergillosis [Unknown]
  - Dyslipidaemia [Unknown]
  - Plasma cell myeloma [Unknown]
  - Basal cell carcinoma [Unknown]
  - Chronic kidney disease [Unknown]
